FAERS Safety Report 6347080-4 (Version None)
Quarter: 2009Q3

REPORT INFORMATION
  Report Type: 
  Country: None (occurrence: None)
  Receive Date: 20090910
  Receipt Date: 20090902
  Transmission Date: 20100115
  Serious: Yes (Death, Hospitalization)
  Sender: FDA-Public Use
  Company Number: GB-WYE-G04282309

PATIENT
  Sex: Male

DRUGS (16)
  1. GEMTUZUMAB OZOGAMICIN [Suspect]
     Indication: ACUTE MYELOID LEUKAEMIA
     Dosage: 5.8MG ON DAY 6
     Dates: start: 20090706, end: 20090706
  2. ARA-C [Suspect]
     Dosage: 193MG ON DAY 1 UNTIL DAY 10
     Dates: start: 20090701, end: 20090710
  3. HYDROXYUREA [Concomitant]
     Route: 048
  4. ACYCLOVIR [Concomitant]
     Route: 048
  5. CHLORHEXIDINE GLUCONATE [Concomitant]
     Route: 004
  6. BENDROFLUMETHIAZIDE [Concomitant]
     Route: 048
  7. XALATAN [Concomitant]
     Route: 047
  8. CODEINE [Concomitant]
     Dosage: 10-15ML TDS
     Route: 048
  9. SENNA [Concomitant]
     Route: 048
  10. LACTULOSE [Concomitant]
  11. PARACETAMOL [Concomitant]
     Dosage: 1G FOUR TIMES DAILY WHEN REQUIRED
     Route: 048
  12. ONDANSETRON [Concomitant]
     Route: 042
     Dates: start: 20090701
  13. DOMPERIDONE [Concomitant]
     Dates: start: 20090701
  14. ALLOPURINOL [Concomitant]
     Dosage: 300MG (FREQUENCY UNKNOWN)
     Dates: start: 20090629, end: 20090724
  15. ITRACONAZOLE [Concomitant]
  16. DAUNORUBICIN HCL [Suspect]
     Dosage: 96.5MG ON DAY 1, DAY 3 AND DAY 5
     Dates: start: 20090701, end: 20090705

REACTIONS (7)
  - ABDOMINAL DISTENSION [None]
  - BONE MARROW FAILURE [None]
  - CARDIAC ARREST [None]
  - CLOSTRIDIAL INFECTION [None]
  - JAUNDICE [None]
  - KLEBSIELLA INFECTION [None]
  - NEUTROPENIC SEPSIS [None]
